FAERS Safety Report 8950983 (Version 1)
Quarter: 2012Q4

REPORT INFORMATION
  Report Type: Spontaneous
  Country: JP (occurrence: None)
  Receive Date: 20121128
  Receipt Date: 20121128
  Transmission Date: 20130627
  Serious: Yes (Other)
  Sender: FDA-Public Use
  Company Number: FK201203418

PATIENT
  Age: 41 Year
  Sex: Male

DRUGS (1)
  1. HEPARIN SODIUM [Suspect]
     Indication: ANTICOAGULANT THERAPY

REACTIONS (4)
  - Heparin-induced thrombocytopenia [None]
  - Cardio-respiratory arrest [None]
  - Coronary artery thrombosis [None]
  - Pulmonary congestion [None]
